FAERS Safety Report 9202083 (Version 2)
Quarter: 2013Q2

REPORT INFORMATION
  Report Type: Spontaneous
  Country: US (occurrence: US)
  Receive Date: 20130401
  Receipt Date: 20130503
  Transmission Date: 20140414
  Serious: Yes (Life-Threatening, Hospitalization, Disabling)
  Sender: FDA-Public Use
  Company Number: US-BAYER-2013-038435

PATIENT
  Age: 38 Year
  Sex: Female

DRUGS (16)
  1. YASMIN [Suspect]
  2. OCELLA [Suspect]
  3. BEYAZ [Suspect]
  4. SOMA [Concomitant]
     Dosage: UNK
     Dates: start: 20091115
  5. XANAX [Concomitant]
     Dosage: UNK
     Dates: start: 20091115
  6. NORCO [Concomitant]
     Dosage: UNK
     Dates: start: 20091115
  7. BACTRIM [Concomitant]
     Dosage: UNK
     Dates: start: 20091115
  8. VANCOMYCIN [Concomitant]
  9. CEFTRIAXONE [Concomitant]
  10. MORPHINE [Concomitant]
     Indication: PAIN
  11. LORAZEPAM [Concomitant]
  12. KLONOPIN [Concomitant]
  13. HALDOL [Concomitant]
  14. ATIVAN [Concomitant]
  15. AUGMENTIN [Concomitant]
  16. YAZ [Suspect]

REACTIONS (9)
  - Deep vein thrombosis [None]
  - Thrombophlebitis [Recovered/Resolved]
  - Injury [None]
  - Pain [None]
  - General physical health deterioration [None]
  - Anxiety [None]
  - Anhedonia [None]
  - Emotional distress [None]
  - Pain [None]
